FAERS Safety Report 6388889-0 (Version None)
Quarter: 2009Q4

REPORT INFORMATION
  Report Type: 
  Country: None (occurrence: None)
  Receive Date: 20091005
  Receipt Date: 20090924
  Transmission Date: 20100525
  Serious: Yes (Life-Threatening, Hospitalization)
  Sender: FDA-Public Use
  Company Number: US-ELI_LILLY_AND_COMPANY-US200909005940

PATIENT
  Sex: Male

DRUGS (3)
  1. ZYPREXA [Suspect]
     Dosage: 1 D/F, UNK
     Route: 048
  2. ZYPREXA [Suspect]
     Dosage: 450 MG, UNK
     Dates: start: 20090911, end: 20090911
  3. RISPERDAL CONSTA [Concomitant]
     Dosage: 50 MG, UNK
     Route: 030
     Dates: start: 20090810, end: 20090827

REACTIONS (5)
  - DROOLING [None]
  - DYSKINESIA [None]
  - GAIT DISTURBANCE [None]
  - OVERDOSE [None]
  - UNRESPONSIVE TO STIMULI [None]
